FAERS Safety Report 16725455 (Version 2)
Quarter: 2019Q3

REPORT INFORMATION
  Report Type: Spontaneous
  Country: US (occurrence: US)
  Receive Date: 20190821
  Receipt Date: 20190829
  Transmission Date: 20191005
  Serious: Yes (Death, Other)
  Sender: FDA-Public Use
  Company Number: US-AMGEN-USASP2019131589

PATIENT
  Age: 77 Year
  Sex: Female
  Weight: 54.42 kg

DRUGS (18)
  1. BISACODYL. [Concomitant]
     Active Substance: BISACODYL
     Dosage: UNK
  2. FUROSEMIDE. [Concomitant]
     Active Substance: FUROSEMIDE
     Dosage: UNK
  3. AMLODIPINE [Concomitant]
     Active Substance: AMLODIPINE BESYLATE
     Dosage: UNK
  4. POTASSIUM [Concomitant]
     Active Substance: POTASSIUM
     Dosage: UNK
  5. TYLENOL [Concomitant]
     Active Substance: ACETAMINOPHEN
     Dosage: UNK
  6. INSULIN [Concomitant]
     Active Substance: INSULIN NOS
     Dosage: UNK
  7. METFORMIN [Concomitant]
     Active Substance: METFORMIN HYDROCHLORIDE
     Dosage: UNK
  8. MORPHINE [Concomitant]
     Active Substance: MORPHINE
     Dosage: UNK
  9. HALDOL [Concomitant]
     Active Substance: HALOPERIDOL
     Dosage: UNK
  10. COMPAZINE [Concomitant]
     Active Substance: PROCHLORPERAZINE MALEATE
     Dosage: UNK
  11. RANITIDINE. [Concomitant]
     Active Substance: RANITIDINE
     Dosage: UNK
  12. MEGACE [Concomitant]
     Active Substance: MEGESTROL ACETATE
     Dosage: UNK
  13. ASPIRIN [ACETYLSALICYLIC ACID] [Concomitant]
     Active Substance: ASPIRIN
     Dosage: UNK
  14. PANTOPRAZOLE [Concomitant]
     Active Substance: PANTOPRAZOLE
     Dosage: UNK
  15. ATIVAN [Concomitant]
     Active Substance: LORAZEPAM
     Dosage: UNK
  16. SIMETHICONE (DIMETHICONE) [Concomitant]
     Active Substance: DIMETHICONE
     Dosage: UNK
  17. NEULASTA [Suspect]
     Active Substance: PEGFILGRASTIM
     Indication: NEUTROPENIA
     Dosage: UNK
     Route: 065
  18. HYOSCYAMINE. [Concomitant]
     Active Substance: HYOSCYAMINE
     Dosage: UNK

REACTIONS (4)
  - Failure to thrive [Fatal]
  - Device failure [Unknown]
  - Disease complication [Fatal]
  - Oncologic complication [Fatal]

NARRATIVE: CASE EVENT DATE: 20180731
